FAERS Safety Report 5425111-3 (Version None)
Quarter: 2007Q3

REPORT INFORMATION
  Report Type: 
  Country: None (occurrence: None)
  Receive Date: 20070824
  Receipt Date: 20070803
  Transmission Date: 20080115
  Serious: No
  Sender: FDA-Public Use
  Company Number: AU-MERCK-0708AUS00174B1

PATIENT
  Sex: Female
  Weight: 3 kg

DRUGS (2)
  1. ALDOMET-M [Suspect]
     Indication: ESSENTIAL HYPERTENSION
     Route: 064
  2. ATENOLOL [Concomitant]
     Indication: ESSENTIAL HYPERTENSION
     Route: 064

REACTIONS (2)
  - FOETAL HEART RATE DECELERATION [None]
  - TACHYCARDIA FOETAL [None]
